FAERS Safety Report 24434902 (Version 2)
Quarter: 2024Q4

REPORT INFORMATION
  Report Type: Spontaneous
  Country: US (occurrence: US)
  Receive Date: 20241014
  Receipt Date: 20241025
  Transmission Date: 20250115
  Serious: No
  Sender: SUNOVION
  Company Number: US-MYOVANT SCIENCES GMBH-2024MYSCI0600030

PATIENT

DRUGS (8)
  1. ORGOVYX [Suspect]
     Active Substance: RELUGOLIX
     Indication: Prostate cancer
     Dosage: 360 MILLIGRAM, ONE TIME DOSE
     Route: 048
     Dates: start: 20240601, end: 20240601
  2. ORGOVYX [Suspect]
     Active Substance: RELUGOLIX
     Dosage: 120 MILLIGRAM, QD
     Route: 048
     Dates: start: 20240602
  3. ORGOVYX [Suspect]
     Active Substance: RELUGOLIX
     Dosage: UNK
     Route: 048
  4. TAMSULOSIN [Concomitant]
     Active Substance: TAMSULOSIN
     Dosage: 0.4 MG, BID
     Route: 065
  5. FINASTERIDE [Concomitant]
     Active Substance: FINASTERIDE
     Dosage: 5 MG, QD
     Route: 065
  6. SERTRALINE [Concomitant]
     Active Substance: SERTRALINE HYDROCHLORIDE
     Dosage: HALF OF 25MG EVERY OTHER DAY
     Route: 065
  7. VITAMINS [Concomitant]
     Active Substance: VITAMINS
     Dosage: UNK, QD
     Route: 065
  8. Super B [Concomitant]
     Dosage: UNK, QD
     Route: 065

REACTIONS (3)
  - Arthralgia [Recovering/Resolving]
  - Hyperhidrosis [Unknown]
  - Product dose omission issue [Unknown]
